FAERS Safety Report 10365918 (Version 1)
Quarter: 2014Q3

REPORT INFORMATION
  Report Type: Spontaneous
  Country: CH (occurrence: CH)
  Receive Date: 20140806
  Receipt Date: 20140806
  Transmission Date: 20150326
  Serious: Yes (Hospitalization)
  Sender: FDA-Public Use
  Company Number: CH-RB PHARMACEUTICALS LIMITED-RB-70051-2014

PATIENT

DRUGS (24)
  1. MORPHINE [Interacting]
     Active Substance: MORPHINE
     Indication: PAIN
     Dosage: 1 MG, (10MG TOTAL)
     Route: 040
     Dates: start: 20140709, end: 20140709
  2. CALCIUM D3                         /00944201/ [Concomitant]
     Active Substance: CALCIUM\CHOLECALCIFEROL
     Indication: OSTEOPOROSIS
     Dosage: 1 DF, DAILY
     Route: 048
  3. ZINACEF [Concomitant]
     Active Substance: CEFUROXIME SODIUM
     Indication: PROPHYLACTIC CHEMOTHERAPY
     Dosage: 1.5 G, 1 TOTAL
     Route: 040
     Dates: start: 20140709, end: 20140709
  4. SIMCORA [Concomitant]
     Active Substance: SIMVASTATIN
     Indication: HYPERLIPIDAEMIA
     Dosage: 20 MG, DAILY
     Route: 048
  5. DAFALGAN [Concomitant]
     Active Substance: ACETAMINOPHEN
     Indication: PAIN
     Dosage: 1 G, QID
     Route: 048
  6. TRAMAL [Concomitant]
     Active Substance: TRAMADOL
     Indication: PAIN
     Dosage: 50 MG, 6 AS NECESSARY
     Route: 048
     Dates: end: 20140709
  7. ATRACURIUM [Concomitant]
     Active Substance: ATRACURIUM
     Indication: ANAESTHESIA
     Dosage: UNK
     Route: 040
     Dates: start: 20140709, end: 20140709
  8. FENTANYL. [Concomitant]
     Active Substance: FENTANYL
     Indication: ANAESTHESIA
     Dosage: 25 ?G, OVERALL
     Route: 040
     Dates: start: 20140709, end: 20140709
  9. HALDOL [Interacting]
     Active Substance: HALOPERIDOL
     Dosage: 1 MG
     Route: 040
     Dates: start: 20140710, end: 20140710
  10. DISOPRIVAN [Concomitant]
     Active Substance: PROPOFOL
     Indication: ANAESTHESIA
     Dosage: UNKNOWN
     Route: 041
     Dates: start: 20140709, end: 20140709
  11. EPHEDRINE [Concomitant]
     Active Substance: EPHEDRINE
     Indication: HYPOTENSION
     Dosage: 10 ?G, 1 TOTAL
     Route: 040
     Dates: start: 20140709, end: 20140709
  12. TEMGESIC 0.3MG INJECTION [Suspect]
     Active Substance: BUPRENORPHINE HYDROCHLORIDE
     Indication: PAIN
     Dosage: 0.3 MG, 3 PER 1 DAY
     Route: 040
     Dates: start: 20140709
  13. IMPORTAL [Concomitant]
     Active Substance: LACTITOL
     Indication: CONSTIPATION
     Dosage: 20 ML, DAILY
     Route: 048
  14. HALDOL [Interacting]
     Active Substance: HALOPERIDOL
     Dosage: 2.5 MG
     Route: 040
     Dates: start: 20140709, end: 20140709
  15. NITROGLYCERINE [Concomitant]
     Active Substance: NITROGLYCERIN
     Indication: PROCEDURAL HYPERTENSION
     Dosage: UNKNOWN
     Route: 065
     Dates: start: 20140709, end: 20140709
  16. TORASEMIDE [Concomitant]
     Active Substance: TORSEMIDE
     Indication: CARDIAC FAILURE
     Dosage: 10 MG, DAILY
     Route: 040
     Dates: start: 20140710
  17. HALDOL [Interacting]
     Active Substance: HALOPERIDOL
     Indication: ANAESTHETIC COMPLICATION NEUROLOGICAL
     Dosage: 1 MG, 5 TIMES
     Route: 040
     Dates: start: 20140709, end: 20140709
  18. ASPIRINE [Concomitant]
     Active Substance: ASPIRIN
     Indication: PERIPHERAL ARTERIAL OCCLUSIVE DISEASE
     Dosage: 100 MG, DAILY
     Route: 048
  19. PHENYLEPHRINE [Concomitant]
     Active Substance: PHENYLEPHRINE\PHENYLEPHRINE HYDROCHLORIDE
     Indication: HYPOTENSION
     Dosage: 400 ?G, 1 TOTAL
     Route: 040
     Dates: start: 20140709, end: 20140709
  20. NOREPINEPHRINE [Concomitant]
     Active Substance: NOREPINEPHRINE\NOREPINEPHRINE BITARTRATE
     Indication: HYPOTENSION
     Dosage: UNKNOWN
     Route: 040
     Dates: start: 20140709, end: 20140709
  21. LASIX [Concomitant]
     Active Substance: FUROSEMIDE
     Indication: ACUTE PULMONARY OEDEMA
     Dosage: 80 MG IN TOTAL, SEVERAL SUCCESSIVE BOLUSES
     Route: 040
  22. ISOKET [Concomitant]
     Active Substance: ISOSORBIDE DINITRATE
     Indication: PROCEDURAL HYPERTENSION
     Dosage: UNK
     Route: 055
     Dates: start: 20140709, end: 20140709
  23. ESMOLOL [Concomitant]
     Active Substance: ESMOLOL HYDROCHLORIDE
     Indication: PROCEDURAL HYPERTENSION
     Dosage: UNK
     Route: 041
     Dates: start: 20140709, end: 20140709
  24. HEPARIN [Concomitant]
     Active Substance: HEPARIN SODIUM
     Indication: PROPHYLACTIC CHEMOTHERAPY
     Dosage: 10000 IU, UNK
     Route: 041
     Dates: start: 20140709

REACTIONS (6)
  - Anaesthetic complication neurological [Recovering/Resolving]
  - Aggression [Recovering/Resolving]
  - Drug prescribing error [Recovered/Resolved]
  - Agitation postoperative [Recovering/Resolving]
  - Off label use [Unknown]
  - Muscle rigidity [Recovering/Resolving]

NARRATIVE: CASE EVENT DATE: 20140709
